FAERS Safety Report 4482158-1 (Version None)
Quarter: 2004Q4

REPORT INFORMATION
  Report Type: 
  Country: None (occurrence: None)
  Receive Date: 20041020
  Receipt Date: 20041007
  Transmission Date: 20050328
  Serious: Yes (Other)
  Sender: FDA-Public Use
  Company Number: 2004076304

PATIENT
  Age: 67 Year
  Sex: Male

DRUGS (4)
  1. ATARAX [Suspect]
     Indication: ILL-DEFINED DISORDER
  2. KETOTIFEN [Concomitant]
  3. REBAMIPIDE (REBAMIPIDE) [Concomitant]
  4. PREDNISOLONE [Concomitant]

REACTIONS (1)
  - TUBULOINTERSTITIAL NEPHRITIS [None]
